FAERS Safety Report 6602130-2 (Version None)
Quarter: 2010Q1

REPORT INFORMATION
  Report Type: 
  Country: None (occurrence: None)
  Receive Date: 20100225
  Receipt Date: 20100219
  Transmission Date: 20100710
  Serious: Yes (Death)
  Sender: FDA-Public Use
  Company Number: PHHY2010DE09747

PATIENT
  Sex: Male

DRUGS (2)
  1. GLEEVEC [Suspect]
     Dosage: UNK
     Route: 048
     Dates: start: 20090401, end: 20090901
  2. GLEEVEC [Suspect]
     Dosage: UNK
     Route: 048
     Dates: start: 20091101

REACTIONS (1)
  - TOXIC EPIDERMAL NECROLYSIS [None]
